FAERS Safety Report 15991109 (Version 2)
Quarter: 2019Q2

REPORT INFORMATION
  Report Type: Report from Study
  Country: GB (occurrence: GB)
  Receive Date: 20190221
  Receipt Date: 20190513
  Transmission Date: 20190711
  Serious: Yes (Hospitalization, Other)
  Sender: FDA-Public Use
  Company Number: GB-JNJFOC-20190218369

PATIENT
  Sex: Female

DRUGS (4)
  1. RAMIPRIL. [Concomitant]
     Active Substance: RAMIPRIL
     Route: 065
  2. THYROXINE [Concomitant]
     Active Substance: LEVOTHYROXINE
     Route: 065
  3. LETROZOLE. [Concomitant]
     Active Substance: LETROZOLE
     Route: 065
  4. STELARA [Suspect]
     Active Substance: USTEKINUMAB
     Indication: PSORIASIS
     Route: 058
     Dates: start: 20140613

REACTIONS (3)
  - Breast mass [Recovered/Resolved]
  - Urinary tract infection [Recovered/Resolved]
  - Pneumonia [Recovered/Resolved]
